FAERS Safety Report 14699192 (Version 1)
Quarter: 2018Q1

REPORT INFORMATION
  Report Type: Report from Study
  Country: US (occurrence: US)
  Receive Date: 20180330
  Receipt Date: 20180330
  Transmission Date: 20180509
  Serious: Yes (Hospitalization, Other)
  Sender: FDA-Public Use
  Company Number: US-TAIHO ONCOLOGY INC-EU-2018-00284

PATIENT
  Age: 64 Year
  Sex: Female
  Weight: 50.85 kg

DRUGS (5)
  1. IRON [Concomitant]
     Active Substance: IRON
     Dosage: NI
  2. ZOFRAN [Concomitant]
     Active Substance: ONDANSETRON HYDROCHLORIDE
  3. COMPAZINE [Concomitant]
     Active Substance: PROCHLORPERAZINE MALEATE
     Dosage: NI
  4. LONSURF [Suspect]
     Active Substance: TIPIRACIL HYDROCHLORIDE\TRIFLURIDINE
     Indication: COLON CANCER METASTATIC
     Dosage: CYCLE 1
     Route: 048
     Dates: start: 20180211
  5. OXYCODONE [Concomitant]
     Active Substance: OXYCODONE
     Dosage: NI

REACTIONS (12)
  - Sinusitis [Unknown]
  - Bronchitis [Not Recovered/Not Resolved]
  - Diarrhoea [Not Recovered/Not Resolved]
  - White blood cell count decreased [Unknown]
  - Clostridium difficile colitis [Unknown]
  - Vomiting [Not Recovered/Not Resolved]
  - Decubitus ulcer [Recovering/Resolving]
  - Decreased appetite [Recovering/Resolving]
  - Nausea [Unknown]
  - Pleural effusion [Unknown]
  - Weight decreased [Recovering/Resolving]
  - Platelet count decreased [Unknown]

NARRATIVE: CASE EVENT DATE: 201802
